FAERS Safety Report 23759622 (Version 2)
Quarter: 2024Q2

REPORT INFORMATION
  Report Type: Report from Study
  Country: US (occurrence: US)
  Receive Date: 20240418
  Receipt Date: 20240521
  Transmission Date: 20240716
  Serious: Yes (Other)
  Sender: FDA-Public Use
  Company Number: US-ABBVIE-5722906

PATIENT
  Sex: Male

DRUGS (1)
  1. HUMIRA [Suspect]
     Active Substance: ADALIMUMAB
     Indication: Hidradenitis
     Dosage: FORM STRENGTH: 40 MILLIGRAM
     Route: 058

REACTIONS (5)
  - Large intestine polyp [Recovered/Resolved]
  - Upper-airway cough syndrome [Recovering/Resolving]
  - Nasopharyngitis [Not Recovered/Not Resolved]
  - Hidradenitis [Recovering/Resolving]
  - Middle insomnia [Unknown]
